FAERS Safety Report 6295249-X (Version None)
Quarter: 2009Q3

REPORT INFORMATION
  Report Type: 
  Country: None (occurrence: None)
  Receive Date: 20090803
  Receipt Date: 20090721
  Transmission Date: 20100115
  Serious: Yes (Other)
  Sender: FDA-Public Use
  Company Number: US-MYLANLABS-2009S1012876

PATIENT
  Age: 62 Year
  Sex: Male

DRUGS (14)
  1. GEMFIBROZIL [Suspect]
     Indication: DYSLIPIDAEMIA
     Dates: start: 20080108, end: 20080523
  2. WARFARIN SODIUM [Interacting]
     Dosage: STABILISED ON 45MG/WEEK FOR PAST 9 MONTHS
  3. WARFARIN SODIUM [Interacting]
  4. WARFARIN SODIUM [Interacting]
  5. LISINOPRIL [Concomitant]
  6. METOPROLOL TARTRATE [Concomitant]
     Dosage: 100MG MORNING AND 200MG EVENING
  7. DYAZIDE [Concomitant]
     Dosage: TRIAMTERENE 37.5MG/HYDROCHLOROTHIAZIDE 25MG/DAY
  8. FUROSEMIDE [Concomitant]
     Dosage: 40MG/DAY
  9. DILTIAZEM [Concomitant]
     Dosage: 300MG/DAY
  10. PROPAFENONE HCL [Concomitant]
  11. METFORMIN [Concomitant]
  12. INSULIN [Concomitant]
  13. OMEGA 3 /00931501/ [Concomitant]
     Indication: DYSLIPIDAEMIA
     Dosage: 4G/DAY
  14. ASPIRIN [Concomitant]
     Dosage: 81MG/DAY

REACTIONS (3)
  - DRUG INTERACTION [None]
  - INTERNATIONAL NORMALISED RATIO INCREASED [None]
  - MYALGIA [None]
